FAERS Safety Report 11713426 (Version 1)
Quarter: 2015Q4

REPORT INFORMATION
  Report Type: Report from Study
  Country: US (occurrence: US)
  Receive Date: 20151109
  Receipt Date: 20151109
  Transmission Date: 20160304
  Serious: No
  Sender: FDA-Public Use
  Company Number: US-AMGEN-USASL2015116257

PATIENT
  Age: 55 Year
  Sex: Female

DRUGS (1)
  1. ENBREL [Suspect]
     Active Substance: ETANERCEPT
     Indication: RHEUMATOID ARTHRITIS
     Dosage: 8 ML, ONCE WEEKLY
     Route: 065
     Dates: start: 20141030

REACTIONS (3)
  - Inappropriate schedule of drug administration [Unknown]
  - Injection site pain [Unknown]
  - Wrong technique in product usage process [Unknown]
